FAERS Safety Report 7290534-7 (Version None)
Quarter: 2011Q1

REPORT INFORMATION
  Report Type: 
  Country: None (occurrence: None)
  Receive Date: 20110214
  Receipt Date: 20110209
  Transmission Date: 20110831
  Serious: No
  Sender: FDA-Public Use
  Company Number: US-PFIZER INC-2011029668

PATIENT
  Sex: Female

DRUGS (1)
  1. ADVIL CONGESTION RELIEF [Suspect]
     Dosage: UNK

REACTIONS (5)
  - SINUS DISORDER [None]
  - DIZZINESS [None]
  - NASAL DISCOMFORT [None]
  - FEELING ABNORMAL [None]
  - EYE IRRITATION [None]
